FAERS Safety Report 8575594 (Version 2)
Quarter: 2014Q1

REPORT INFORMATION
  Report Type: Spontaneous
  Country: US (occurrence: None)
  Receive Date: 20120323
  Receipt Date: 20130305
  Transmission Date: 20141002
  Serious: Yes (Hospitalization)
  Sender: FDA-Public Use
  Company Number: 163-21880-11080159

PATIENT
  Age: 66 Year
  Sex: Male
  Weight: 93.9 kg

DRUGS (11)
  1. REVLIMID [Suspect]
     Indication: PLASMA CELL MYELOMA
     Dosage: 5MG, X 21 DAYS, PO
     Route: 048
     Dates: start: 20110701
  2. DEXAMETHASONE (DEXAMETHASONE) [Concomitant]
  3. VELCADE [Concomitant]
  4. ACYCLOVIR [Concomitant]
  5. ASPIRIN (ACETYLSALICYLIC ACID) (TABLETS) [Concomitant]
  6. COENZYME Q10 (UBIDECARENONE) (CAPSULES) [Concomitant]
  7. COREG (CARVEDILOL) (TABLETS) [Concomitant]
  8. COZAAR (LOSARTAN POTASSIUM) (TABLETS) [Concomitant]
  9. ZOCOR (SIMVASTATIN) (TABLETS) [Concomitant]
  10. CYTOXAN (CYCLOPHOSPHAMIDE) [Concomitant]
  11. NEUPOGEN (FILGRASTIM) (INJECTION) [Concomitant]

REACTIONS (6)
  - Pancytopenia [None]
  - Atrial fibrillation [None]
  - Plasma cell myeloma [None]
  - No therapeutic response [None]
  - Neoplasm progression [None]
  - Plasma cell myeloma [None]
